FAERS Safety Report 8883494 (Version 2)
Quarter: 2012Q4

REPORT INFORMATION
  Report Type: 
  Country: US (occurrence: US)
  Receive Date: 20121102
  Receipt Date: 20121228
  Transmission Date: 20130627
  Serious: Yes (Hospitalization, Other)
  Sender: FDA-Public Use
  Company Number: US-BRISTOL-MYERS SQUIBB COMPANY-17063678

PATIENT
  Age: 51 Year
  Sex: Male

DRUGS (2)
  1. YERVOY [Suspect]
     Indication: MALIGNANT MELANOMA
     Dates: start: 20121010, end: 20121031
  2. HEPARIN [Suspect]

REACTIONS (3)
  - Pulmonary embolism [Unknown]
  - Tumour haemorrhage [Unknown]
  - Malignant neoplasm progression [Unknown]
